FAERS Safety Report 9109993 (Version 3)
Quarter: 2013Q3

REPORT INFORMATION
  Report Type: Spontaneous
  Country: GB (occurrence: GB)
  Receive Date: 20130222
  Receipt Date: 20130823
  Transmission Date: 20140515
  Serious: Yes (Other)
  Sender: FDA-Public Use
  Company Number: GB-JNJFOC-20130207390

PATIENT
  Sex: Male

DRUGS (4)
  1. STELARA [Suspect]
     Indication: PSORIASIS
     Route: 058
  2. CLOPIDOGREL [Concomitant]
     Route: 048
  3. CO-DYDRAMOL [Concomitant]
     Indication: ANALGESIC THERAPY
     Route: 048
  4. CO-CODAMOL [Concomitant]
     Indication: ANALGESIC THERAPY
     Route: 065

REACTIONS (4)
  - Arthritis [Not Recovered/Not Resolved]
  - Psoriasis [Unknown]
  - Headache [Unknown]
  - Arthralgia [Not Recovered/Not Resolved]
